FAERS Safety Report 10089330 (Version 1)
Quarter: 2014Q2

REPORT INFORMATION
  Report Type: Spontaneous
  Country: US (occurrence: None)
  Receive Date: 20140418
  Receipt Date: 20140418
  Transmission Date: 20141212
  Serious: Yes (Death)
  Sender: FDA-Public Use
  Company Number: None

PATIENT
  Age: 61 Year
  Sex: Male
  Weight: 96.4 kg

DRUGS (16)
  1. BORTEZOMIB [Suspect]
     Indication: PLASMA CELL MYELOMA
     Dosage: 2.7 MG IV PUSH QIDAYS X4
     Route: 042
     Dates: start: 20140325, end: 20140404
  2. LENALIDOMIDE [Suspect]
     Dosage: 25 MG PO QD 1-14
     Route: 048
     Dates: start: 20140325, end: 20140407
  3. DECADRON [Suspect]
     Dosage: 20 MG PO?
     Route: 048
  4. AMLODIPINE 5 MG [Concomitant]
  5. CLONIDINE 0.1MG [Concomitant]
  6. EDARBYCLOR 40-12.5 MG [Concomitant]
  7. KCL10MEQ [Concomitant]
  8. OMEPRAZOLE 20MG TWICE DAILY [Concomitant]
  9. ZOCOR 20MG [Concomitant]
  10. ALLOPURINOL 300MG [Concomitant]
  11. ASA 61 MG [Concomitant]
  12. PROCHLORPERAZINE 10MG [Concomitant]
  13. VALTREX 500MG FILMTABLETTEN [Concomitant]
  14. BORTEZOMIB 1.3MG/M2 [Concomitant]
  15. DEXAMETHASONE 20MG [Concomitant]
  16. LENALIDOMIDE 25MG [Concomitant]

REACTIONS (4)
  - Gastrointestinal obstruction [None]
  - Hypotension [None]
  - Asthenia [None]
  - Abdominal pain [None]
